FAERS Safety Report 10367639 (Version 1)
Quarter: 2014Q3

REPORT INFORMATION
  Report Type: Spontaneous
  Country: DK (occurrence: DK)
  Receive Date: 20140807
  Receipt Date: 20140807
  Transmission Date: 20150326
  Serious: Yes (Other)
  Sender: FDA-Public Use
  Company Number: DK-JNJFOC-20140720489

PATIENT
  Age: 56 Year
  Sex: Male

DRUGS (2)
  1. OLANZAPINE. [Concomitant]
     Active Substance: OLANZAPINE
     Indication: PSYCHOTIC DISORDER
     Route: 065
     Dates: start: 20140501
  2. SERENASE [Suspect]
     Active Substance: HALOPERIDOL
     Indication: PSYCHOTIC DISORDER
     Route: 048
     Dates: start: 20140502, end: 20140526

REACTIONS (3)
  - Urinary tract infection [Unknown]
  - Renal impairment [Unknown]
  - Urinary retention [Recovered/Resolved]

NARRATIVE: CASE EVENT DATE: 20140507
